FAERS Safety Report 4404341-3 (Version None)
Quarter: 2004Q3

REPORT INFORMATION
  Report Type: 
  Country: None (occurrence: None)
  Receive Date: 20040719
  Receipt Date: 20040708
  Transmission Date: 20050211
  Serious: Yes (Hospitalization)
  Sender: FDA-Public Use
  Company Number: 04P-087-0264724-00

PATIENT
  Age: 58 Year
  Sex: Female
  Weight: 55 kg

DRUGS (6)
  1. OMNICEF [Suspect]
     Indication: CORONARY ARTERIAL STENT INSERTION
     Dosage: 100 MG, 3 IN 1 D, PER ORAL
     Route: 048
     Dates: start: 20040531, end: 20040604
  2. TICLOPIDINE HCL [Suspect]
     Indication: CORONARY ARTERIAL STENT INSERTION
     Dosage: 100 MG, 2 IN 1 D, PER ORAL
     Route: 048
     Dates: start: 20040511, end: 20040604
  3. CEFPODOXIME PROXETIL [Suspect]
     Indication: CORONARY ARTERIAL STENT INSERTION
     Dosage: 100 MG, 2 IN 1 D, PER ORAL
     Route: 048
     Dates: start: 20040525, end: 20040531
  4. LOXOPROFEN SODIUM [Suspect]
     Indication: CORONARY ARTERIAL STENT INSERTION
     Dosage: 60 MG, 3 IN 1 D, PER ORAL
     Route: 048
     Dates: start: 20040528, end: 20040604
  5. STRONG NEO-MINOPHAGEN C [Suspect]
     Dosage: INTRAVENOUS
     Route: 042
     Dates: start: 20040604, end: 20040608
  6. TEPRENONE [Concomitant]

REACTIONS (8)
  - AGRANULOCYTOSIS [None]
  - ALANINE AMINOTRANSFERASE ABNORMAL [None]
  - ASPARTATE AMINOTRANSFERASE ABNORMAL [None]
  - BLOOD BILIRUBIN ABNORMAL [None]
  - EOSINOPHILIA [None]
  - FATIGUE [None]
  - LIVER DISORDER [None]
  - WHITE BLOOD CELL COUNT DECREASED [None]
